FAERS Safety Report 19461591 (Version 2)
Quarter: 2021Q3

REPORT INFORMATION
  Report Type: Spontaneous
  Country: US (occurrence: US)
  Receive Date: 20210625
  Receipt Date: 20210702
  Transmission Date: 20211014
  Serious: No
  Sender: FDA-Public Use
  Company Number: US-PRASCO LABORATORIES-PRAS20210670

PATIENT
  Age: 65 Year
  Sex: Female
  Weight: 59 kg

DRUGS (2)
  1. EPLERENONE. [Suspect]
     Active Substance: EPLERENONE
     Indication: BLOOD ALDOSTERONE INCREASED
  2. EPLERENONE. [Suspect]
     Active Substance: EPLERENONE
     Indication: HYPERTENSION
     Dosage: 2 TABLETS
     Route: 048
     Dates: start: 2020

REACTIONS (5)
  - Product dispensing error [None]
  - Therapeutic product effect decreased [Not Recovered/Not Resolved]
  - Intentional product misuse [None]
  - Product label issue [None]
  - Off label use [None]

NARRATIVE: CASE EVENT DATE: 20210606
